FAERS Safety Report 16124350 (Version 1)
Quarter: 2019Q1

REPORT INFORMATION
  Report Type: Spontaneous
  Country: FR (occurrence: FR)
  Receive Date: 20190327
  Receipt Date: 20190327
  Transmission Date: 20190418
  Serious: Yes (Hospitalization)
  Sender: FDA-Public Use
  Company Number: FR-GLAXOSMITHKLINE-FR2019052445

PATIENT
  Age: 31 Year
  Sex: Male

DRUGS (2)
  1. VIMPAT [Concomitant]
     Active Substance: LACOSAMIDE
     Indication: PRODUCT USED FOR UNKNOWN INDICATION
     Dosage: UNK
     Route: 065
  2. LAMICTAL [Suspect]
     Active Substance: LAMOTRIGINE
     Indication: EPILEPSY
     Dosage: AS NECESSARY
     Route: 048
     Dates: start: 20190225, end: 20190228

REACTIONS (6)
  - Balance disorder [Recovered/Resolved]
  - Accidental overdose [Unknown]
  - Tachycardia [Recovered/Resolved]
  - Headache [Recovered/Resolved]
  - Wrong product administered [Unknown]
  - Medication error [Unknown]

NARRATIVE: CASE EVENT DATE: 20190225
